FAERS Safety Report 7986375-5 (Version None)
Quarter: 2011Q4

REPORT INFORMATION
  Report Type: 
  Country: None (occurrence: None)
  Receive Date: 20111216
  Receipt Date: 20110307
  Transmission Date: 20120403
  Serious: No
  Sender: FDA-Public Use
  Company Number: US-GLAXOSMITHKLINE-A0916969A

PATIENT
  Age: 55 Year
  Sex: Male

DRUGS (4)
  1. ISOSORBIDE DINITRATE [Concomitant]
  2. NITROGLYCERIN [Concomitant]
  3. RAMIPRIL [Concomitant]
  4. COREG CR [Suspect]
     Dosage: 80MG PER DAY
     Route: 048
     Dates: start: 20110202

REACTIONS (3)
  - PALLOR [None]
  - ASTHENIA [None]
  - COLD SWEAT [None]
